FAERS Safety Report 5031976-X (Version None)
Quarter: 2006Q2

REPORT INFORMATION
  Report Type: 
  Country: None (occurrence: None)
  Receive Date: 20060614
  Receipt Date: 20060601
  Transmission Date: 20061013
  Serious: Yes (Hospitalization)
  Sender: FDA-Public Use
  Company Number: 2006-143479-NL

PATIENT
  Age: 73 Year
  Sex: Male

DRUGS (3)
  1. TICE BCG [Suspect]
     Indication: BLADDER CANCER RECURRENT
     Dosage: CFU INTRAVESICAL, 6 INSTILLATIONS
     Route: 043
     Dates: start: 20050310, end: 20050415
  2. COZAAR [Concomitant]
  3. HYZAAR [Concomitant]

REACTIONS (6)
  - CHILLS [None]
  - GRANULOMA [None]
  - GROIN PAIN [None]
  - LYMPH NODES SCAN ABNORMAL [None]
  - MASS [None]
  - PYREXIA [None]
